FAERS Safety Report 8269760-6 (Version None)
Quarter: 2012Q2

REPORT INFORMATION
  Report Type: 
  Country: None (occurrence: None)
  Receive Date: 20120406
  Receipt Date: 20120322
  Transmission Date: 20120825
  Serious: Yes (Congenital Anomaly, Other)
  Sender: FDA-Public Use
  Company Number: 20120182

PATIENT

DRUGS (2)
  1. LAMOTRGINE [Suspect]
     Indication: EPILEPSY
     Dosage: 900 MG,
  2. LEVETIRACETAM [Suspect]
     Indication: AFFECTIVE DISORDER
     Dosage: 2000 MG

REACTIONS (3)
  - INTESTINAL MALROTATION [None]
  - MATERNAL DRUGS AFFECTING FOETUS [None]
  - CONGENITAL ANOMALY [None]
